FAERS Safety Report 7939181-1 (Version None)
Quarter: 2011Q4

REPORT INFORMATION
  Report Type: 
  Country: None (occurrence: None)
  Receive Date: 20111124
  Receipt Date: 20111111
  Transmission Date: 20120403
  Serious: Yes (Hospitalization)
  Sender: FDA-Public Use
  Company Number: DE-ROCHE-732613

PATIENT
  Sex: Male
  Weight: 106 kg

DRUGS (22)
  1. PANTOPRAZOLE [Concomitant]
  2. SIMVASTATIN [Concomitant]
  3. ZOPICLON [Concomitant]
  4. ACTEMRA [Suspect]
     Indication: RHEUMATOID ARTHRITIS
     Dosage: FIRST APPLICATION WAS GIVEN AT 480 MG, ALL THE FOLLOWING ONES AT 800 MG
     Route: 042
     Dates: start: 20091015, end: 20100401
  5. CALCIMAGON-D3 [Concomitant]
  6. PALLADONE [Concomitant]
  7. HYDROXYCHLOROQUINE SULFATE [Suspect]
     Indication: PRODUCT USED FOR UNKNOWN INDICATION
     Dates: start: 20090801
  8. AMITRIPTYLINE HCL [Concomitant]
  9. ASPIRIN [Concomitant]
  10. RAMIPRIL [Concomitant]
  11. ACTEMRA [Suspect]
     Route: 042
     Dates: start: 20100719, end: 20100801
  12. PREDNISOLONE [Concomitant]
     Indication: RHEUMATOID ARTHRITIS
     Route: 048
  13. PREDNISOLONE [Concomitant]
  14. DEKRISTOL [Concomitant]
  15. FOLIC ACID [Concomitant]
  16. POLYETHYLENE GLYCOL [Concomitant]
  17. RAMIPRIL [Concomitant]
     Dates: start: 20100601
  18. BISOPROLOL FUMARATE [Concomitant]
  19. ACTEMRA [Suspect]
     Route: 042
  20. METHOTREXATE [Concomitant]
     Indication: RHEUMATOID ARTHRITIS
     Dosage: S.C. GIVEN FROM JAN 2009, FOLLOWED BY ORAL AT 10 MG SINCE APR 2010
     Dates: start: 20090101, end: 20100301
  21. GLIMEPIRIDE [Concomitant]
  22. HYDROXYCHLOROQUINE SULFATE [Concomitant]

REACTIONS (2)
  - IMPAIRED HEALING [None]
  - WOUND INFECTION [None]
